FAERS Safety Report 8491421-9 (Version None)
Quarter: 2012Q3

REPORT INFORMATION
  Report Type: 
  Country: None (occurrence: None)
  Receive Date: 20120706
  Receipt Date: 20120627
  Transmission Date: 20120928
  Serious: Yes (Other)
  Sender: FDA-Public Use
  Company Number: JP-VERTEX PHARMACEUTICALS INC.-AE-2012-005915

PATIENT
  Age: 54 Year
  Sex: Female

DRUGS (12)
  1. TELAVIC (TELAPREVIR) [Suspect]
     Indication: HEPATITIS C
     Route: 048
     Dates: start: 20120411, end: 20120516
  2. REBETOL [Concomitant]
     Route: 048
     Dates: start: 20120509, end: 20120516
  3. PEG-INTRON [Concomitant]
     Route: 058
     Dates: start: 20120509, end: 20120516
  4. REBETOL [Concomitant]
     Route: 048
     Dates: start: 20120525
  5. URSO 250 [Concomitant]
     Route: 048
  6. REBETOL [Concomitant]
     Indication: HEPATITIS C
     Route: 048
     Dates: start: 20120411
  7. MICARDIS [Concomitant]
     Route: 048
  8. TELAVIC (TELAPREVIR) [Suspect]
     Route: 048
     Dates: start: 20120602
  9. PEG-INTRON [Concomitant]
     Indication: HEPATITIS C
     Route: 058
     Dates: start: 20120411
  10. PEG-INTRON [Concomitant]
     Route: 058
     Dates: start: 20120418
  11. PEG-INTRON [Concomitant]
     Route: 058
     Dates: start: 20120425
  12. PEG-INTRON [Concomitant]
     Route: 058
     Dates: start: 20120524

REACTIONS (1)
  - NEUTROPHIL COUNT DECREASED [None]
